FAERS Safety Report 23257486 (Version 2)
Quarter: 2024Q1

REPORT INFORMATION
  Report Type: Report from Study
  Country: IT (occurrence: IT)
  Receive Date: 20231204
  Receipt Date: 20240219
  Transmission Date: 20240410
  Serious: Yes (Hospitalization)
  Sender: FDA-Public Use
  Company Number: IT-TAKEDA-2022TUS092617

PATIENT
  Age: 65 Year
  Sex: Male

DRUGS (1)
  1. HUMAN IMMUNOGLOBULIN G\HYALURONIDASE RECOMBINANT HUMAN [Suspect]
     Active Substance: HUMAN IMMUNOGLOBULIN G\HYALURONIDASE (HUMAN RECOMBINANT)
     Indication: Secondary immunodeficiency
     Dosage: 25 GRAM, MONTHLY
     Route: 058

REACTIONS (4)
  - Large intestine polyp [Recovered/Resolved]
  - Tremor [Recovered/Resolved]
  - Chills [Recovered/Resolved]
  - Inappropriate schedule of product administration [Unknown]

NARRATIVE: CASE EVENT DATE: 20231121
